FAERS Safety Report 17711206 (Version 2)
Quarter: 2020Q3

REPORT INFORMATION
  Report Type: Spontaneous
  Country: JP (occurrence: JP)
  Receive Date: 20200427
  Receipt Date: 20200826
  Transmission Date: 20201102
  Serious: Yes (Other)
  Sender: FDA-Public Use
  Company Number: JP-JNJFOC-20200423669

PATIENT
  Age: 59 Year
  Sex: Female
  Weight: 50.4 kg

DRUGS (44)
  1. TRAMCET [Suspect]
     Active Substance: ACETAMINOPHEN\TRAMADOL
     Route: 048
     Dates: start: 20191008
  2. UPTRAVI [Suspect]
     Active Substance: SELEXIPAG
     Route: 048
     Dates: start: 20180306, end: 20180423
  3. WARFARIN POTASSIUM [Suspect]
     Active Substance: WARFARIN POTASSIUM
     Indication: PRODUCT USED FOR UNKNOWN INDICATION
     Route: 048
     Dates: end: 20171026
  4. HALCION [Concomitant]
     Active Substance: TRIAZOLAM
  5. NAUZELIN [Concomitant]
     Active Substance: DOMPERIDONE
     Indication: NAUSEA
     Dates: start: 20181221, end: 20181227
  6. UPTRAVI [Suspect]
     Active Substance: SELEXIPAG
     Route: 048
     Dates: start: 20180126, end: 20180215
  7. REVATIO [Suspect]
     Active Substance: SILDENAFIL CITRATE
     Indication: PULMONARY ARTERIAL HYPERTENSION
     Route: 048
  8. WARFARIN POTASSIUM [Suspect]
     Active Substance: WARFARIN POTASSIUM
     Route: 048
     Dates: start: 20180424, end: 20180805
  9. CODEINE PHOSPHATE HEMIHYDRATE [Suspect]
     Active Substance: CODEINE PHOSPHATE
     Route: 048
     Dates: end: 20190204
  10. SPIRONOLACTONE. [Concomitant]
     Active Substance: SPIRONOLACTONE
     Dates: start: 20180925
  11. LUNESTA [Concomitant]
     Active Substance: ESZOPICLONE
     Dates: start: 20181218, end: 20181224
  12. LINZESS [Concomitant]
     Active Substance: LINACLOTIDE
     Indication: CONSTIPATION
     Dates: start: 20190205, end: 20190304
  13. VENTAVIS [Concomitant]
     Active Substance: ILOPROST
  14. ESZOPICLONE. [Concomitant]
     Active Substance: ESZOPICLONE
  15. UPTRAVI [Suspect]
     Active Substance: SELEXIPAG
     Indication: PULMONARY ARTERIAL HYPERTENSION
     Route: 048
     Dates: start: 20170622, end: 20170825
  16. UPTRAVI [Suspect]
     Active Substance: SELEXIPAG
     Route: 048
     Dates: start: 20180515, end: 20180924
  17. UPTRAVI [Suspect]
     Active Substance: SELEXIPAG
     Route: 048
     Dates: start: 20180925, end: 20181107
  18. UPTRAVI [Suspect]
     Active Substance: SELEXIPAG
     Route: 048
     Dates: start: 20181218, end: 20181225
  19. UPTRAVI [Suspect]
     Active Substance: SELEXIPAG
     Route: 048
     Dates: start: 20190106
  20. ALLEGRA [Concomitant]
     Active Substance: FEXOFENADINE HYDROCHLORIDE
     Dates: start: 20180511, end: 20190401
  21. OXYGEN. [Concomitant]
     Active Substance: OXYGEN
  22. SHOSEIRYUTO                        /08000301/ [Concomitant]
     Active Substance: HERBALS
     Route: 065
     Dates: start: 20191203
  23. UPTRAVI [Suspect]
     Active Substance: SELEXIPAG
     Route: 048
     Dates: start: 20181108, end: 20181217
  24. REVATIO [Suspect]
     Active Substance: SILDENAFIL CITRATE
     Route: 048
     Dates: start: 20170206
  25. LAC?B [Concomitant]
     Active Substance: BIFIDOBACTERIUM SPP.
     Indication: NAUSEA
     Dates: start: 20181116
  26. TRAMCET [Suspect]
     Active Substance: ACETAMINOPHEN\TRAMADOL
     Indication: HEADACHE
     Route: 048
     Dates: start: 20180605, end: 20191007
  27. UPTRAVI [Suspect]
     Active Substance: SELEXIPAG
     Route: 048
     Dates: start: 20180424, end: 20180514
  28. SYMPROTIN [Concomitant]
     Dates: start: 20181229, end: 20190506
  29. CIMETIDINE [Concomitant]
     Active Substance: CIMETIDINE
     Route: 065
     Dates: start: 20190604, end: 20200121
  30. FAMOTIDINE. [Concomitant]
     Active Substance: FAMOTIDINE
     Route: 065
     Dates: start: 20200122
  31. CODEINE PHOSPHATE HEMIHYDRATE [Suspect]
     Active Substance: CODEINE PHOSPHATE
     Indication: DIARRHOEA
     Route: 048
     Dates: start: 20180126
  32. AZOSEMIDE [Concomitant]
     Active Substance: AZOSEMIDE
     Dates: start: 20180306
  33. BELSOMRA [Concomitant]
     Active Substance: SUVOREXANT
     Dates: start: 20180129
  34. ALESION [Concomitant]
     Active Substance: EPINASTINE HYDROCHLORIDE
     Dates: start: 20190402, end: 20190603
  35. GASMOTIN [Concomitant]
     Active Substance: MOSAPRIDE CITRATE
     Dates: start: 20180925
  36. UPTRAVI [Suspect]
     Active Substance: SELEXIPAG
     Dosage: 0.4 MG IN THE MORNING, 0.2 MG IN THE EVENING
     Route: 048
     Dates: start: 20180216, end: 20180305
  37. TRAZODONE HYDROCHLORIDE. [Concomitant]
     Active Substance: TRAZODONE HYDROCHLORIDE
     Dates: start: 20180130
  38. MIYA?BM [Concomitant]
     Active Substance: CLOSTRIDIUM BUTYRICUM SPORES STRAIN M-55
     Dates: start: 20181225, end: 20190204
  39. REMERON [Concomitant]
     Active Substance: MIRTAZAPINE
     Dates: start: 20190107
  40. UPTRAVI [Suspect]
     Active Substance: SELEXIPAG
     Route: 048
     Dates: start: 20181226, end: 20190105
  41. OPSUMIT [Suspect]
     Active Substance: MACITENTAN
     Indication: PULMONARY ARTERIAL HYPERTENSION
     Route: 048
     Dates: start: 20170323
  42. WARFARIN POTASSIUM [Suspect]
     Active Substance: WARFARIN POTASSIUM
     Route: 048
     Dates: start: 20171027, end: 20180423
  43. TAKECAB [Concomitant]
     Active Substance: VONOPRAZAN FUMARATE
     Indication: NAUSEA
     Dates: start: 20181116, end: 20190603
  44. MIGSIS [Concomitant]
     Active Substance: LOMERIZINE HYDROCHLORIDE
     Dates: start: 20190104

REACTIONS (9)
  - Pain in jaw [Recovered/Resolved]
  - Pain [Unknown]
  - Vitreous haemorrhage [Recovered/Resolved]
  - Myalgia [Recovering/Resolving]
  - Headache [Recovered/Resolved]
  - Diarrhoea [Recovered/Resolved]
  - Neuralgia [Unknown]
  - Nausea [Recovering/Resolving]
  - Constipation [Recovered/Resolved]

NARRATIVE: CASE EVENT DATE: 20180731
